FAERS Safety Report 9671595 (Version 4)
Quarter: 2014Q2

REPORT INFORMATION
  Report Type: Spontaneous
  Country: CA (occurrence: None)
  Receive Date: 20131104
  Receipt Date: 20140611
  Transmission Date: 20141212
  Serious: Yes (Death, Other)
  Sender: FDA-Public Use
  Company Number: CA-013463

PATIENT
  Age: 68 Year
  Sex: Male

DRUGS (17)
  1. FIRMAGON [Suspect]
     Indication: PROSTATE CANCER
     Route: 058
     Dates: start: 20130822, end: 20130822
  2. PHYLLANTHUS NIRURI [Concomitant]
  3. AMLODIPINE [Concomitant]
  4. ATENOLOL [Concomitant]
  5. HYDROCHLOROTHIAZIDE [Concomitant]
  6. METFORMIN [Suspect]
  7. ALPHA LIPOIC ACID [Concomitant]
  8. CHROMIUM [Concomitant]
  9. MELATONIN [Concomitant]
  10. NAPROXEN [Concomitant]
  11. OMEPRAZOLE [Concomitant]
  12. ZINC [Concomitant]
  13. VITAMIN D NOS [Concomitant]
  14. CALCIUM [Concomitant]
  15. OXAZEPAM [Concomitant]
  16. VITAMIN B COMPLEX [Concomitant]
  17. HERBAL [Concomitant]

REACTIONS (7)
  - Nausea [None]
  - Medication error [None]
  - Overdose [None]
  - Coordination abnormal [None]
  - Asthenia [None]
  - Fatigue [None]
  - Malaise [None]
